FAERS Safety Report 14303739 (Version 1)
Quarter: 2017Q4

REPORT INFORMATION
  Report Type: Spontaneous
  Country: GB (occurrence: GB)
  Receive Date: 20171219
  Receipt Date: 20171219
  Transmission Date: 20180321
  Serious: Yes (Other)
  Sender: FDA-Public Use
  Company Number: None

PATIENT
  Age: 67 Year
  Sex: Female
  Weight: 63 kg

DRUGS (5)
  1. LISINIPRIL [Concomitant]
     Active Substance: LISINOPRIL
  2. EUMOVATE [Suspect]
     Active Substance: CLOBETASONE BUTYRATE
     Indication: ECZEMA
     Dates: start: 20070404, end: 20140604
  3. BETAHISTINE [Concomitant]
     Active Substance: BETAHISTINE
  4. SERTRALINE 200 CODYDRAMOL [Concomitant]
  5. GLUCOSAMINE [Concomitant]
     Active Substance: GLUCOSAMINE

REACTIONS (4)
  - Cellulitis [None]
  - Therapy cessation [None]
  - Skin disorder [None]
  - Rash [None]

NARRATIVE: CASE EVENT DATE: 20100404
